FAERS Safety Report 8159758-0 (Version None)
Quarter: 2012Q1

REPORT INFORMATION
  Report Type: 
  Country: None (occurrence: None)
  Receive Date: 20120223
  Receipt Date: 20120217
  Transmission Date: 20120608
  Serious: Yes (Hospitalization)
  Sender: FDA-Public Use
  Company Number: IT-B.I. PHARMACEUTICALS,INC./RIDGEFIELD-2012-IT-00034IT

PATIENT
  Sex: Male

DRUGS (8)
  1. AGGRENOX [Suspect]
     Dosage: 2 POSOLOGIC UNITS
     Route: 048
     Dates: start: 20101226, end: 20111225
  2. AVODART [Concomitant]
  3. LIMPIDEX [Concomitant]
  4. TAMSULOSIN HYDROCHLORIDE [Concomitant]
  5. LUVION [Concomitant]
  6. COUMADIN [Suspect]
     Route: 048
     Dates: start: 20101226, end: 20111225
  7. LASIX [Concomitant]
  8. VALPRESSION [Concomitant]

REACTIONS (1)
  - SUBDURAL HAEMATOMA [None]
